FAERS Safety Report 9587239 (Version 1)
Quarter: 2013Q4

REPORT INFORMATION
  Report Type: Spontaneous
  Country: IT (occurrence: FR)
  Receive Date: 20131003
  Receipt Date: 20131003
  Transmission Date: 20140711
  Serious: Yes (Hospitalization)
  Sender: FDA-Public Use
  Company Number: FR-FRI-1000049336

PATIENT
  Sex: Male

DRUGS (6)
  1. NEBIVOLOL [Suspect]
     Dosage: 5 MG
     Route: 048
     Dates: start: 2004, end: 2006
  2. BISOPROLOL [Suspect]
     Dosage: 1.25 MG
     Route: 048
     Dates: start: 2012, end: 2013
  3. LANSOPRAZOLE [Concomitant]
  4. HEMIGOXINE NATIVELLE [Concomitant]
  5. NOCTAMIDE [Concomitant]
  6. TRANSIPEG [Concomitant]

REACTIONS (1)
  - Pulmonary fibrosis [Not Recovered/Not Resolved]
